FAERS Safety Report 19803790 (Version 1)
Quarter: 2021Q3

REPORT INFORMATION
  Report Type: Spontaneous
  Country: US (occurrence: US)
  Receive Date: 20210908
  Receipt Date: 20210908
  Transmission Date: 20211014
  Serious: Yes (Life-Threatening, Hospitalization, Other)
  Sender: FDA-Public Use
  Company Number: US-PFIZER INC-202101108388

PATIENT
  Age: 79 Year
  Sex: Female

DRUGS (1)
  1. PACLITAXEL. [Suspect]
     Active Substance: PACLITAXEL
     Indication: SQUAMOUS CELL CARCINOMA OF THE CERVIX
     Dosage: 1.3 ML INFUSION
     Route: 042

REACTIONS (3)
  - Acute respiratory failure [Recovering/Resolving]
  - Stress cardiomyopathy [Recovered/Resolved]
  - Cardiogenic shock [Recovering/Resolving]
